FAERS Safety Report 7100124-4 (Version None)
Quarter: 2010Q4

REPORT INFORMATION
  Report Type: 
  Country: None (occurrence: None)
  Receive Date: 20101112
  Receipt Date: 20100301
  Transmission Date: 20110411
  Serious: No
  Sender: FDA-Public Use
  Company Number: A0850127A

PATIENT
  Sex: Male

DRUGS (1)
  1. COREG [Suspect]

REACTIONS (2)
  - HYPERSENSITIVITY [None]
  - LUNG DISORDER [None]
